FAERS Safety Report 20944710 (Version 3)
Quarter: 2022Q4

REPORT INFORMATION
  Report Type: Report from Study
  Country: DE (occurrence: DE)
  Receive Date: 20220610
  Receipt Date: 20221223
  Transmission Date: 20230113
  Serious: Yes (Hospitalization, Other)
  Sender: FDA-Public Use
  Company Number: DE-CELLTRION INC.-2022DE009076

PATIENT

DRUGS (12)
  1. INFLIXIMAB [Suspect]
     Active Substance: INFLIXIMAB
     Indication: Axial spondyloarthritis
     Dosage: 120 MG, EVERY 2 WEEKS
     Route: 042
     Dates: start: 20210915
  2. INFLIXIMAB [Suspect]
     Active Substance: INFLIXIMAB
     Indication: Axial spondyloarthritis
     Dosage: 120 MG, EVERY 2 WEEKS
     Route: 058
     Dates: start: 20210915
  3. INFLIXIMAB [Suspect]
     Active Substance: INFLIXIMAB
     Dosage: 120 MG
     Route: 058
     Dates: start: 20211015, end: 20220710
  4. INFLIXIMAB [Suspect]
     Active Substance: INFLIXIMAB
     Dosage: 120 MG
     Dates: start: 20210915, end: 20210930
  5. INFLECTRA [Suspect]
     Active Substance: INFLIXIMAB-DYYB
     Indication: Axial spondyloarthritis
     Dosage: 400 MG EVERY 4 WEEKS
     Dates: start: 20220807
  6. NAPROXEN [Concomitant]
     Active Substance: NAPROXEN
     Dosage: 500 MG, 7 DAYS PER WEEK
     Dates: start: 20210608, end: 20220715
  7. SIMPONI [Concomitant]
     Active Substance: GOLIMUMAB
     Dosage: 50 MG, EVERY 4 WEEKS
     Dates: start: 20200502, end: 20210515
  8. SIMPONI [Concomitant]
     Active Substance: GOLIMUMAB
     Dosage: 50 MG, EVERY 4 WEEKS
     Dates: start: 20210615, end: 20210815
  9. METHOTREXATE SODIUM [Concomitant]
     Active Substance: METHOTREXATE SODIUM
     Dosage: 10 MG
     Route: 058
  10. METHOTREXATE SODIUM [Concomitant]
     Active Substance: METHOTREXATE SODIUM
     Dosage: 5 MG
     Route: 058
  11. CELECOXIB [Concomitant]
     Active Substance: CELECOXIB
     Dosage: 200 MG
  12. ACEMETACIN [Concomitant]
     Active Substance: ACEMETACIN
     Dosage: 180 MG

REACTIONS (5)
  - Spinal osteoarthritis [Unknown]
  - Gastritis [Unknown]
  - Somatic symptom disorder [Unknown]
  - Depression [Unknown]
  - COVID-19 [Recovered/Resolved]

NARRATIVE: CASE EVENT DATE: 20211004
